FAERS Safety Report 7599960-X (Version None)
Quarter: 2011Q3

REPORT INFORMATION
  Report Type: 
  Country: None (occurrence: None)
  Receive Date: 20110711
  Receipt Date: 20110706
  Transmission Date: 20111222
  Serious: No
  Sender: FDA-Public Use
  Company Number: US-PFIZER INC-2011127658

PATIENT
  Sex: Female
  Weight: 57.1 kg

DRUGS (4)
  1. VALSARTAN [Concomitant]
     Indication: RENAL DISORDER
     Dosage: 40 MG, DAILY
     Route: 048
  2. LYRICA [Suspect]
     Indication: DIABETIC NEUROPATHY
     Dosage: 150 MG, DAILY
     Route: 048
     Dates: start: 20110101
  3. GLUCOPHAGE [Concomitant]
     Indication: DIABETES MELLITUS
     Dosage: 1000 MG, 2X/DAY
     Route: 048
  4. LANTUS [Concomitant]
     Indication: DIABETES MELLITUS
     Dosage: 36 IU, DAILY

REACTIONS (2)
  - OEDEMA PERIPHERAL [None]
  - MOVEMENT DISORDER [None]
